FAERS Safety Report 5074544-6 (Version None)
Quarter: 2006Q3

REPORT INFORMATION
  Report Type: 
  Country: None (occurrence: None)
  Receive Date: 20060808
  Receipt Date: 20060531
  Transmission Date: 20061208
  Serious: Yes (Hospitalization)
  Sender: FDA-Public Use
  Company Number: US-AMGEN-STX181379

PATIENT
  Sex: Female

DRUGS (3)
  1. ENBREL [Suspect]
     Indication: RHEUMATOID ARTHRITIS
     Route: 058
     Dates: start: 20060101
  2. ARAVA [Concomitant]
  3. SULFASALAZINE [Concomitant]

REACTIONS (3)
  - INTERVERTEBRAL DISC PROTRUSION [None]
  - INTRACRANIAL HYPOTENSION [None]
  - SPINAL DISORDER [None]
